FAERS Safety Report 10797536 (Version 1)
Quarter: 2015Q1

REPORT INFORMATION
  Report Type: Spontaneous
  Country: IE (occurrence: DE)
  Receive Date: 20150216
  Receipt Date: 20150216
  Transmission Date: 20150721
  Serious: Yes (Hospitalization)
  Sender: FDA-Public Use
  Company Number: IE-MYLANLABS-2015M1004072

PATIENT

DRUGS (3)
  1. MARCUMAR [Suspect]
     Active Substance: PHENPROCOUMON
     Dosage: 3 DF, QD
     Dates: start: 20121208, end: 20121208
  2. MARCUMAR [Suspect]
     Active Substance: PHENPROCOUMON
     Dosage: 2 DF, QD
     Dates: start: 20121209
  3. FONDAPARINUX [Suspect]
     Active Substance: FONDAPARINUX
     Indication: THROMBOSIS PROPHYLAXIS
     Dosage: 2.5 MG, QD
     Dates: start: 201211, end: 20121210

REACTIONS (2)
  - Acute kidney injury [Recovering/Resolving]
  - Pericardial haemorrhage [Recovering/Resolving]

NARRATIVE: CASE EVENT DATE: 20121210
